FAERS Safety Report 7729283-7 (Version None)
Quarter: 2011Q3

REPORT INFORMATION
  Report Type: 
  Country: None (occurrence: None)
  Receive Date: 20110906
  Receipt Date: 20110902
  Transmission Date: 20111222
  Serious: No
  Sender: FDA-Public Use
  Company Number: US-PFIZER INC-2011206114

PATIENT
  Sex: Female

DRUGS (2)
  1. LORATADINE AND PSEUDOEPHEDRINE SULFATE [Suspect]
     Indication: HYPERSENSITIVITY
  2. LORATADINE AND PSEUDOEPHEDRINE SULFATE [Suspect]
     Indication: SINUS DISORDER
     Dosage: UNK, EVERY 12 HOURS
     Dates: start: 20110819, end: 20110821

REACTIONS (1)
  - DRUG INEFFECTIVE [None]
